FAERS Safety Report 5662348-2 (Version None)
Quarter: 2008Q1

REPORT INFORMATION
  Report Type: 
  Country: None (occurrence: None)
  Receive Date: 20080312
  Receipt Date: 20080301
  Transmission Date: 20080703
  Serious: Yes (Other)
  Sender: FDA-Public Use
  Company Number: US-PFIZER INC-2008021036

PATIENT
  Age: 72 Year
  Sex: Female

DRUGS (5)
  1. CHANTIX [Suspect]
  2. HYDROCHLOROTHIAZIDE [Concomitant]
  3. COUGH SYRUP [Concomitant]
  4. NSAID'S [Concomitant]
  5. ANTIINFECTIVES [Concomitant]

REACTIONS (3)
  - EYE DISORDER [None]
  - HALLUCINATION, VISUAL [None]
  - VISION BLURRED [None]
